FAERS Safety Report 10172052 (Version 1)
Quarter: 2014Q2

REPORT INFORMATION
  Report Type: Spontaneous
  Country: IL (occurrence: IL)
  Receive Date: 20140515
  Receipt Date: 20140515
  Transmission Date: 20141212
  Serious: Yes (Death)
  Sender: FDA-Public Use
  Company Number: IL-009507513-1405ISR006563

PATIENT
  Age: 80 Year
  Sex: Female

DRUGS (1)
  1. TEMODAL [Suspect]
     Indication: BRAIN NEOPLASM
     Dosage: VIA PEG-TUBE

REACTIONS (2)
  - Brain neoplasm [Fatal]
  - Wrong technique in drug usage process [Unknown]
